FAERS Safety Report 6278795-4 (Version None)
Quarter: 2009Q3

REPORT INFORMATION
  Report Type: 
  Country: None (occurrence: None)
  Receive Date: 20090723
  Receipt Date: 20090714
  Transmission Date: 20100115
  Serious: Yes (Other)
  Sender: FDA-Public Use
  Company Number: US-BIOGENIDEC-2009BI015947

PATIENT
  Age: 59 Year
  Sex: Female

DRUGS (9)
  1. TYSABRI [Suspect]
     Indication: MULTIPLE SCLEROSIS
     Route: 042
     Dates: start: 20080707
  2. CLARITIN [Concomitant]
     Indication: PREMEDICATION
     Route: 048
     Dates: start: 20081006
  3. TYLENOL (CAPLET) [Concomitant]
     Indication: PREMEDICATION
     Route: 048
     Dates: start: 20081006
  4. PRILOSEC [Concomitant]
     Indication: GASTROOESOPHAGEAL REFLUX DISEASE
     Route: 048
     Dates: start: 20081006
  5. VYTORIN [Concomitant]
     Indication: HYPERCHOLESTEROLAEMIA
     Route: 048
     Dates: start: 20081006
  6. WELLBUTRIN XL [Concomitant]
     Indication: DEPRESSION
     Route: 048
     Dates: start: 20081006
  7. LISINOPRIL [Concomitant]
     Indication: ESSENTIAL HYPERTENSION
     Route: 048
     Dates: start: 20081006
  8. ULTRAM [Concomitant]
     Indication: OSTEOARTHRITIS
     Route: 048
     Dates: start: 20081006
  9. DARVOCET-N 100 [Concomitant]
     Indication: INTERVERTEBRAL DISC DISORDER
     Route: 048
     Dates: start: 20081006

REACTIONS (2)
  - BACK PAIN [None]
  - OSTEOPOROTIC FRACTURE [None]
